FAERS Safety Report 14574530 (Version 1)
Quarter: 2018Q1

REPORT INFORMATION
  Report Type: Spontaneous
  Country: US (occurrence: US)
  Receive Date: 20180224
  Receipt Date: 20180224
  Transmission Date: 20180509
  Serious: Yes (Hospitalization)
  Sender: FDA-Public Use
  Company Number: None

PATIENT
  Sex: Female
  Weight: 49.5 kg

DRUGS (7)
  1. WARFARIN [Concomitant]
     Active Substance: WARFARIN
  2. INCENTIVE SPIROMETER [Concomitant]
  3. METOPROLOL. [Suspect]
     Active Substance: METOPROLOL
     Indication: TACHYCARDIA
     Dates: start: 20180209, end: 20180210
  4. DILTIAZEM. [Concomitant]
     Active Substance: DILTIAZEM
  5. ALBUTEROL SULFATE. [Concomitant]
     Active Substance: ALBUTEROL SULFATE
  6. DIGITEK [Concomitant]
     Active Substance: DIGOXIN
  7. RDA FROM FOOD (BREAKFAST CEREAL) [Concomitant]

REACTIONS (5)
  - Pneumonia [None]
  - Heart rate decreased [None]
  - Heart rate increased [None]
  - Atrial fibrillation [None]
  - Bundle branch block right [None]

NARRATIVE: CASE EVENT DATE: 20180210
